FAERS Safety Report 11520892 (Version 1)
Quarter: 2015Q3

REPORT INFORMATION
  Report Type: Spontaneous
  Country: US (occurrence: US)
  Receive Date: 20150918
  Receipt Date: 20150918
  Transmission Date: 20151125
  Serious: No
  Sender: FDA-Public Use
  Company Number: US-CELGENEUS-USA-2015083769

PATIENT
  Age: 43 Year
  Sex: Male
  Weight: 93.52 kg

DRUGS (2)
  1. OTEZLA [Suspect]
     Active Substance: APREMILAST
     Route: 048
     Dates: start: 20150417
  2. OTEZLA [Suspect]
     Active Substance: APREMILAST
     Indication: PSORIATIC ARTHROPATHY
     Route: 048
     Dates: start: 201502

REACTIONS (5)
  - Abdominal distension [Unknown]
  - Drug ineffective [Unknown]
  - Weight increased [Unknown]
  - Faeces soft [Unknown]
  - Dysphagia [Unknown]

NARRATIVE: CASE EVENT DATE: 20150805
